FAERS Safety Report 20821737 (Version 1)
Quarter: 2022Q2

REPORT INFORMATION
  Report Type: Spontaneous
  Country: US (occurrence: US)
  Receive Date: 20220512
  Receipt Date: 20220512
  Transmission Date: 20220720
  Serious: No
  Sender: FDA-Public Use
  Company Number: US-PFIZER INC-202200292949

PATIENT
  Age: 27 Year
  Sex: Female

DRUGS (2)
  1. XELJANZ [Suspect]
     Active Substance: TOFACITINIB CITRATE
     Indication: Alopecia areata
     Dosage: 5 MG, 3X/DAY
     Route: 048
  2. XELJANZ [Suspect]
     Active Substance: TOFACITINIB CITRATE
     Indication: Alopecia totalis
     Dosage: 15 MG, DAILY(5 MG ORAL - TABLET^ ^10 MG ORAL
     Route: 048

REACTIONS (5)
  - Off label use [Unknown]
  - Off label use [Unknown]
  - Therapeutic product effective for unapproved indication [Unknown]
  - Anxiety [Unknown]
  - Disorientation [Unknown]
